FAERS Safety Report 8193446-X (Version None)
Quarter: 2012Q1

REPORT INFORMATION
  Report Type: 
  Country: None (occurrence: None)
  Receive Date: 20120308
  Receipt Date: 20120221
  Transmission Date: 20120608
  Serious: Yes (Hospitalization)
  Sender: FDA-Public Use
  Company Number: DE-AMGEN-US379934

PATIENT
  Age: 72 Year
  Sex: Male

DRUGS (12)
  1. RAMIPRIL [Suspect]
     Dosage: UNK UNK, UNK
     Route: 065
  2. ARCOXIA [Suspect]
     Dosage: 1.0 DF, 1X/DAY
  3. RAMIPRIL [Suspect]
     Route: 065
  4. COLECALCIFEROL [Suspect]
     Route: 065
  5. ALLOPURINOL [Suspect]
     Dosage: UNK UNK, UNK
     Route: 065
  6. PROPAFENONE HCL [Suspect]
     Route: 065
  7. ENBREL [Suspect]
     Indication: RHEUMATOID ARTHRITIS
     Dosage: 25 MG, 2 TIMES/WK
     Route: 058
     Dates: start: 20080422, end: 20091201
  8. ARCOXIA [Suspect]
     Dosage: 1 UNK, QD
     Route: 065
  9. CALCIUM CARBONATE [Suspect]
     Route: 065
  10. PREDNISOLONE [Suspect]
     Dosage: 5 MG, UNK
     Route: 065
  11. CALCIUM CARBONATE [Suspect]
     Indication: OSTEOPOROSIS
     Dosage: UNK UNK, UNK
     Route: 065
  12. COLECALCIFEROL [Suspect]
     Indication: OSTEOPOROSIS
     Dosage: UNK UNK, UNK
     Route: 065

REACTIONS (3)
  - STRESS [None]
  - ABDOMINAL PAIN UPPER [None]
  - NAUSEA [None]
